FAERS Safety Report 10766646 (Version 1)
Quarter: 2015Q1

REPORT INFORMATION
  Report Type: Spontaneous
  Country: US (occurrence: US)
  Receive Date: 20150205
  Receipt Date: 20150205
  Transmission Date: 20150721
  Serious: Yes (Death)
  Sender: FDA-Public Use
  Company Number: US-PERRIGO-15US001105

PATIENT
  Age: 23 Year
  Sex: Male

DRUGS (6)
  1. CODEINE [Suspect]
     Active Substance: CODEINE
     Indication: DRUG ABUSE
     Dosage: UNKNOWN,UNKNOWN
     Route: 048
  2. TRAMADOL [Suspect]
     Active Substance: TRAMADOL
     Indication: DRUG ABUSE
     Dosage: UNKNOWN,UNKNOWN
     Route: 048
  3. PROMETHAZINE HYDROCHLORIDE 12.5 MG 4J3 [Suspect]
     Active Substance: PROMETHAZINE HYDROCHLORIDE
     Indication: DRUG ABUSE
     Dosage: UNKNOWN,UNKNOWN
     Route: 065
  4. METOPROLOL [Suspect]
     Active Substance: METOPROLOL
     Indication: DRUG ABUSE
     Dosage: UNKNOWN,UNKNOWN
     Route: 048
  5. DIAZEPAM. [Suspect]
     Active Substance: DIAZEPAM
     Indication: DRUG ABUSE
     Dosage: UNKNOWN, UNKNOWN
     Route: 048
  6. CYCLOBENZAPRINE [Suspect]
     Active Substance: CYCLOBENZAPRINE
     Indication: DRUG ABUSE
     Dosage: UNKNOWN,UNKNOWN
     Route: 048

REACTIONS (1)
  - Death [Fatal]
